FAERS Safety Report 19030054 (Version 1)
Quarter: 2021Q1

REPORT INFORMATION
  Report Type: Spontaneous
  Country: GB (occurrence: GB)
  Receive Date: 20210319
  Receipt Date: 20210319
  Transmission Date: 20210420
  Serious: Yes (Disabling)
  Sender: FDA-Public Use
  Company Number: GB-AMGEN-GBRSP2018025144

PATIENT
  Age: 85 Year
  Sex: Female

DRUGS (4)
  1. XGEVA [Suspect]
     Active Substance: DENOSUMAB
     Indication: METASTASES TO BONE
  2. AZATHIOPRINE. [Concomitant]
     Active Substance: AZATHIOPRINE
     Dosage: UNK
  3. XGEVA [Suspect]
     Active Substance: DENOSUMAB
     Indication: BREAST CANCER
     Dosage: 120 MILLIGRAM, Q4WK
     Route: 058
  4. VEDOLIZUMAB [Suspect]
     Active Substance: VEDOLIZUMAB
     Indication: CROHN^S DISEASE
     Dosage: 300 MILLIGRAM
     Route: 042
     Dates: start: 20170314

REACTIONS (14)
  - Malaise [Recovering/Resolving]
  - Dyspnoea [Unknown]
  - Influenza like illness [Recovering/Resolving]
  - Rhinitis [Unknown]
  - Nasopharyngitis [Recovering/Resolving]
  - Metrorrhagia [Unknown]
  - Hyperhidrosis [Recovering/Resolving]
  - Asthma [Not Recovered/Not Resolved]
  - Headache [Unknown]
  - Pain in jaw [Not Recovered/Not Resolved]
  - Musculoskeletal chest pain [Unknown]
  - Infection [Unknown]
  - Dizziness [Recovering/Resolving]
  - Arthralgia [Unknown]

NARRATIVE: CASE EVENT DATE: 20180203
